FAERS Safety Report 7801458-8 (Version None)
Quarter: 2011Q4

REPORT INFORMATION
  Report Type: 
  Country: None (occurrence: None)
  Receive Date: 20111006
  Receipt Date: 20111006
  Transmission Date: 20120403
  Serious: Yes (Hospitalization)
  Sender: FDA-Public Use
  Company Number: None

PATIENT
  Age: 36 Year
  Sex: Female
  Weight: 99.8 kg

DRUGS (13)
  1. TRAZODONE HYDROCHLORIDE [Concomitant]
  2. CYMBALTA [Concomitant]
  3. VALIUM [Concomitant]
  4. XANAX [Concomitant]
  5. PHENTERMINE [Concomitant]
  6. ALBUTEROL [Concomitant]
  7. CARDURA [Concomitant]
  8. ZEGERID [Concomitant]
  9. ZOFRAN [Concomitant]
  10. DILAUDID [Concomitant]
  11. FLAGYL [Suspect]
     Indication: COLITIS
     Dosage: 500 MG BID PO RECENT
     Route: 048
  12. MIRAPEX [Concomitant]
  13. PRAVASTATIN [Concomitant]

REACTIONS (1)
  - PANCREATITIS [None]
